FAERS Safety Report 7778909-0 (Version None)
Quarter: 2011Q3

REPORT INFORMATION
  Report Type: 
  Country: None (occurrence: None)
  Receive Date: 20110926
  Receipt Date: 20110113
  Transmission Date: 20111222
  Serious: No
  Sender: FDA-Public Use
  Company Number: US-ALLERGAN-1100514US

PATIENT
  Age: 72 Year
  Sex: Male

DRUGS (1)
  1. AZELEXA? [Suspect]
     Indication: SEBORRHOEA
     Dosage: 1 APPLICATION BID
     Route: 061
     Dates: end: 20110101

REACTIONS (1)
  - BURNING SENSATION [None]
